FAERS Safety Report 13754035 (Version 2)
Quarter: 2017Q3

REPORT INFORMATION
  Report Type: Report from Study
  Country: US (occurrence: BR)
  Receive Date: 20170714
  Receipt Date: 20170926
  Transmission Date: 20171127
  Serious: Yes (Hospitalization, Other)
  Sender: FDA-Public Use
  Company Number: US-SUNOVION-2017SUN003056

PATIENT
  Age: 73 Year
  Sex: Female
  Weight: 79 kg

DRUGS (13)
  1. NASONEX [Concomitant]
     Active Substance: MOMETASONE FUROATE
  2. INDACATEROL AND GLYCOPYRROLATE [Suspect]
     Active Substance: GLYCOPYRROLATE\INDACATEROL MALEATE
     Indication: BRONCHITIS
     Dosage: 1 DF, QD
     Route: 055
  3. PREDSIN [Concomitant]
     Active Substance: CHLORAMPHENICOL\PREDNISOLONE
  4. OXIMAX [Concomitant]
     Active Substance: MOMETASONE FUROATE
  5. ALDACTONE [Concomitant]
     Active Substance: SPIRONOLACTONE
  6. DESLORATADINE. [Concomitant]
     Active Substance: DESLORATADINE
  7. KLARICID [Concomitant]
     Active Substance: CLARITHROMYCIN
  8. FLUOXETINE [Concomitant]
     Active Substance: FLUOXETINE HYDROCHLORIDE
  9. FUROSEMIDE COMPOSTO [Concomitant]
  10. LOSARTAN POTASSICO [Concomitant]
  11. AEROLIN [Concomitant]
     Active Substance: ALBUTEROL
  12. ASTRO [Concomitant]
  13. CORTISONE [Concomitant]
     Active Substance: CORTISONE\HYDROCORTISONE

REACTIONS (19)
  - Dry skin [Unknown]
  - Feeling cold [Unknown]
  - Aphthous ulcer [Not Recovered/Not Resolved]
  - Dyspnoea [Recovering/Resolving]
  - Oral pain [Unknown]
  - Weight increased [Unknown]
  - Hypersensitivity [Unknown]
  - Dehydration [Unknown]
  - Cough [Unknown]
  - Drug ineffective [Unknown]
  - Influenza [Not Recovered/Not Resolved]
  - Memory impairment [Unknown]
  - Otitis media [Unknown]
  - Restrictive pulmonary disease [Unknown]
  - Lung disorder [Unknown]
  - Rhinorrhoea [Recovering/Resolving]
  - Acute kidney injury [Unknown]
  - Alopecia [Unknown]
  - Sinusitis [Unknown]

NARRATIVE: CASE EVENT DATE: 20170309
